FAERS Safety Report 5989911-3 (Version None)
Quarter: 2008Q4

REPORT INFORMATION
  Report Type: 
  Country: None (occurrence: None)
  Receive Date: 20081210
  Receipt Date: 20081201
  Transmission Date: 20090506
  Serious: Yes (Other)
  Sender: FDA-Public Use
  Company Number: 2008SP024435

PATIENT

DRUGS (2)
  1. TEMODAL [Suspect]
     Indication: ANAPLASTIC ASTROCYTOMA
  2. TEMODAL [Suspect]
     Indication: GLIOBLASTOMA

REACTIONS (1)
  - IMPAIRED HEALING [None]
